FAERS Safety Report 16706296 (Version 1)
Quarter: 2019Q3

REPORT INFORMATION
  Report Type: Spontaneous
  Country: US (occurrence: US)
  Receive Date: 20190815
  Receipt Date: 20190815
  Transmission Date: 20191004
  Serious: No
  Sender: FDA-Public Use
  Company Number: US-PFIZER INC-2019347413

PATIENT
  Sex: Female

DRUGS (1)
  1. ALAVERT ALLERGY [Suspect]
     Active Substance: LORATADINE
     Dosage: UNK

REACTIONS (5)
  - Decreased appetite [Unknown]
  - Hypertension [Unknown]
  - Nausea [Unknown]
  - Anxiety [Unknown]
  - Heart rate increased [Unknown]
